FAERS Safety Report 5215696-4 (Version None)
Quarter: 2007Q1

REPORT INFORMATION
  Report Type: 
  Country: None (occurrence: None)
  Receive Date: 20070123
  Receipt Date: 20070115
  Transmission Date: 20070707
  Serious: Yes (Hospitalization)
  Sender: FDA-Public Use
  Company Number: BR-ROCHE-478651

PATIENT
  Age: 72 Year
  Sex: Female
  Weight: 56 kg

DRUGS (3)
  1. BONVIVA [Suspect]
     Indication: OSTEOPENIA
     Route: 048
     Dates: start: 20061212
  2. ATENOLOL [Concomitant]
     Route: 048
  3. MODURETIC 5-50 [Concomitant]
     Route: 048

REACTIONS (7)
  - ARTHRALGIA [None]
  - DIARRHOEA [None]
  - DIVERTICULITIS [None]
  - DIZZINESS [None]
  - GASTROINTESTINAL PAIN [None]
  - MYALGIA [None]
  - NAUSEA [None]
